FAERS Safety Report 25150145 (Version 1)
Quarter: 2025Q2

REPORT INFORMATION
  Report Type: Report from Study
  Country: US (occurrence: US)
  Receive Date: 20250402
  Receipt Date: 20250402
  Transmission Date: 20250717
  Serious: No
  Sender: VANDA PHARMACEUTICALS
  Company Number: US-VANDA PHARMACEUTICALS, INC-2025PONUS001137

PATIENT
  Age: 64 Year
  Sex: Female

DRUGS (2)
  1. PONESIMOD [Suspect]
     Active Substance: PONESIMOD
     Indication: Multiple sclerosis
  2. PONESIMOD [Suspect]
     Active Substance: PONESIMOD
     Dates: start: 202501

REACTIONS (2)
  - Thinking abnormal [Unknown]
  - Fatigue [Unknown]

NARRATIVE: CASE EVENT DATE: 20250101
